FAERS Safety Report 21504600 (Version 1)
Quarter: 2022Q4

REPORT INFORMATION
  Report Type: Spontaneous
  Country: US (occurrence: US)
  Receive Date: 20221025
  Receipt Date: 20221025
  Transmission Date: 20230112
  Serious: No
  Sender: FDA-Public Use
  Company Number: US-JUBILANT CADISTA PHARMACEUTICALS INC.-2021JUB00352

PATIENT
  Age: 50 Year
  Sex: Female

DRUGS (1)
  1. LOSARTAN POTASSIUM AND HYDROCHLOROTHIAZIDE [Suspect]
     Active Substance: HYDROCHLOROTHIAZIDE\LOSARTAN POTASSIUM
     Dosage: UNK
     Dates: start: 20211003, end: 20211006

REACTIONS (2)
  - Hypersensitivity [Recovering/Resolving]
  - Recalled product administered [Recovered/Resolved]

NARRATIVE: CASE EVENT DATE: 20211003
